FAERS Safety Report 18043725 (Version 2)
Quarter: 2020Q3

REPORT INFORMATION
  Report Type: Spontaneous
  Country: PT (occurrence: PT)
  Receive Date: 20200720
  Receipt Date: 20200831
  Transmission Date: 20201103
  Serious: Yes (Hospitalization)
  Sender: FDA-Public Use
  Company Number: PT-TEVA-2020-PT-1801610

PATIENT
  Age: 63 Year

DRUGS (1)
  1. CIPROFLOXACINA RATIOPHARM 500 MG COMPRIMIDOS REVESTIDOS [Suspect]
     Active Substance: CIPROFLOXACIN
     Indication: URINARY TRACT INFECTION
     Dosage: 1 12% TABLET 12H FOR 8 DAYS. 500 MG
     Route: 048
     Dates: start: 20200620, end: 20200623

REACTIONS (3)
  - Peripheral swelling [Unknown]
  - Syncope [Recovered/Resolved]
  - Vomiting [Recovered/Resolved]

NARRATIVE: CASE EVENT DATE: 20200621
